FAERS Safety Report 12717319 (Version 1)
Quarter: 2016Q3

REPORT INFORMATION
  Report Type: Spontaneous
  Country: AT (occurrence: AT)
  Receive Date: 20160906
  Receipt Date: 20160906
  Transmission Date: 20161109
  Serious: Yes (Other)
  Sender: FDA-Public Use
  Company Number: AT-GLAXOSMITHKLINE-AT2016127738

PATIENT
  Age: 27 Year
  Sex: Female

DRUGS (1)
  1. ROPINIROLE. [Suspect]
     Active Substance: ROPINIROLE

REACTIONS (3)
  - Mood swings [Unknown]
  - Suicide attempt [Unknown]
  - Gambling disorder [Recovered/Resolved]
